FAERS Safety Report 5031517-7 (Version None)
Quarter: 2006Q2

REPORT INFORMATION
  Report Type: 
  Country: None (occurrence: None)
  Receive Date: 20060616
  Receipt Date: 20060607
  Transmission Date: 20061013
  Serious: Yes (Hospitalization)
  Sender: FDA-Public Use
  Company Number: S06-SWE-02375-01

PATIENT
  Age: 58 Year
  Sex: Female

DRUGS (5)
  1. CITALOPRAM HYDROBROMIDE [Suspect]
     Indication: DEPRESSION
     Dosage: 40 MG QD PO
     Route: 048
  2. WARFARIN SODIUM [Suspect]
     Indication: DEPRESSION
     Dosage: 2.5 MG QD PO
     Route: 048
  3. WARFARIN SODIUM [Suspect]
     Indication: DEEP VEIN THROMBOSIS
     Dosage: 2.5 MG QD PO
     Route: 048
  4. TRAMADOL HYDROCHLORIDE [Concomitant]
  5. ACETAMINOPHEN [Concomitant]

REACTIONS (2)
  - HEMIPARESIS [None]
  - SUBDURAL HAEMORRHAGE [None]
